FAERS Safety Report 4586949-8 (Version None)
Quarter: 2005Q1

REPORT INFORMATION
  Report Type: 
  Country: None (occurrence: None)
  Receive Date: 20050218
  Receipt Date: 20050127
  Transmission Date: 20050727
  Serious: Yes (Hospitalization)
  Sender: FDA-Public Use
  Company Number: FR-BRISTOL-MYERS SQUIBB COMPANY-12848388

PATIENT
  Age: 20 Year
  Sex: Female
  Weight: 62 kg

DRUGS (5)
  1. HOLOXAN [Suspect]
     Indication: LYMPHOMA
     Route: 042
     Dates: start: 20041130, end: 20041202
  2. METHOTREXATE [Suspect]
     Indication: LYMPHOMA
     Route: 042
     Dates: start: 20041202, end: 20041202
  3. METHYL-GAG [Suspect]
     Indication: LYMPHOMA
     Route: 042
     Dates: start: 20041130, end: 20041203
  4. DOXORUBICIN HCL [Suspect]
     Indication: LYMPHOMA
     Route: 042
     Dates: start: 20041201, end: 20041201
  5. ETOPOSIDE TEVA [Suspect]
     Indication: LYMPHOMA
     Route: 042
     Dates: start: 20041130, end: 20041202

REACTIONS (4)
  - ENCEPHALOPATHY [None]
  - ERYTHEMA [None]
  - OEDEMA PERIPHERAL [None]
  - PARAESTHESIA [None]
